FAERS Safety Report 7314645-2 (Version None)
Quarter: 2011Q1

REPORT INFORMATION
  Report Type: 
  Country: None (occurrence: None)
  Receive Date: 20110225
  Receipt Date: 20101129
  Transmission Date: 20110831
  Serious: No
  Sender: FDA-Public Use
  Company Number: US-MYLANLABS-2010S1019647

PATIENT
  Age: 58 Year
  Sex: Male

DRUGS (4)
  1. AMNESTEEM [Suspect]
     Indication: LICHEN PLANUS
     Route: 048
     Dates: start: 20091209, end: 20101112
  2. KLONOPIN [Concomitant]
  3. INDERAL LA [Concomitant]
  4. PAMELOR [Concomitant]
     Dosage: 10-20MG

REACTIONS (2)
  - LICHEN PLANUS [None]
  - DRUG INEFFECTIVE FOR UNAPPROVED INDICATION [None]
